FAERS Safety Report 6279733-0 (Version None)
Quarter: 2009Q3

REPORT INFORMATION
  Report Type: 
  Country: None (occurrence: None)
  Receive Date: 20090721
  Receipt Date: 20090706
  Transmission Date: 20100115
  Serious: Yes (Other)
  Sender: FDA-Public Use
  Company Number: 2009-0302

PATIENT
  Sex: Female

DRUGS (1)
  1. LANREOTIDE AUTOGEL (LANREOTIDE) [Suspect]
     Dosage: 90 MG INTRAMUSCULAR
     Route: 030
     Dates: start: 20070903, end: 20090206

REACTIONS (1)
  - INJECTION SITE NODULE [None]
